FAERS Safety Report 6394111-1 (Version None)
Quarter: 2009Q4

REPORT INFORMATION
  Report Type: 
  Country: None (occurrence: None)
  Receive Date: 20091008
  Receipt Date: 20090930
  Transmission Date: 20100525
  Serious: Yes (Other)
  Sender: FDA-Public Use
  Company Number: PHHY2009GB42841

PATIENT
  Sex: Female

DRUGS (3)
  1. TEGRETOL [Suspect]
  2. MYSOLINE [Concomitant]
  3. KEPPRA [Concomitant]

REACTIONS (1)
  - CONVULSION [None]
